FAERS Safety Report 15701379 (Version 1)
Quarter: 2018Q4

REPORT INFORMATION
  Report Type: Spontaneous
  Country: GB (occurrence: GB)
  Receive Date: 20181207
  Receipt Date: 20181207
  Transmission Date: 20190205
  Serious: Yes (Hospitalization)
  Sender: FDA-Public Use
  Company Number: GB-TEVA-2018-GB-983236

PATIENT
  Age: 63 Year
  Sex: Female

DRUGS (9)
  1. ORAMORPH [Suspect]
     Active Substance: MORPHINE SULFATE
     Route: 065
  2. OMEPRAZOLE. [Suspect]
     Active Substance: OMEPRAZOLE
     Route: 065
  3. PAROXETINE. [Suspect]
     Active Substance: PAROXETINE
     Route: 065
  4. ZOMORPH [Suspect]
     Active Substance: MORPHINE SULFATE
     Route: 065
  5. NEFOPAM [Suspect]
     Active Substance: NEFOPAM
     Route: 065
  6. ONDANSETRON [Suspect]
     Active Substance: ONDANSETRON
     Route: 065
  7. CLOPIDOGREL [Suspect]
     Active Substance: CLOPIDOGREL BISULFATE
     Route: 065
  8. HYDROCORTISONE. [Suspect]
     Active Substance: HYDROCORTISONE
     Route: 065
  9. DIAZEPAM. [Suspect]
     Active Substance: DIAZEPAM
     Route: 065

REACTIONS (2)
  - Prescription drug used without a prescription [Unknown]
  - Somnolence [Unknown]
